FAERS Safety Report 8923008 (Version 3)
Quarter: 2014Q2

REPORT INFORMATION
  Report Type: Spontaneous
  Country: US (occurrence: US)
  Receive Date: 20121123
  Receipt Date: 20131024
  Transmission Date: 20141212
  Serious: Yes (Other)
  Sender: FDA-Public Use
  Company Number: US-PFIZER INC-2012291818

PATIENT
  Age: 51 Year
  Sex: Female
  Weight: 68.2 kg

DRUGS (5)
  1. SOLU-MEDROL [Suspect]
     Indication: MULTIPLE SCLEROSIS
     Dosage: 1 G, 1X/DAY (FOR THREE DAYS)
     Route: 042
     Dates: start: 20121115, end: 20121117
  2. COPAXONE [Concomitant]
     Indication: MULTIPLE SCLEROSIS
     Dosage: UNK
  3. BACLOFEN [Concomitant]
     Dosage: 10 MG, 2X/DAY
     Route: 048
  4. EFFEXOR [Concomitant]
     Dosage: UNK
  5. TOVIAZ [Concomitant]
     Dosage: 8 MG, 1X/DAY
     Route: 048

REACTIONS (4)
  - Blood pressure increased [Unknown]
  - Erythema [Unknown]
  - White blood cells urine [Unknown]
  - pH urine abnormal [Unknown]
